FAERS Safety Report 5484458-5 (Version None)
Quarter: 2007Q4

REPORT INFORMATION
  Report Type: 
  Country: None (occurrence: None)
  Receive Date: 20071010
  Receipt Date: 20071002
  Transmission Date: 20080405
  Serious: Yes (Hospitalization)
  Sender: FDA-Public Use
  Company Number: GXKR2004US00750

PATIENT
  Age: 53 Year
  Sex: Male

DRUGS (3)
  1. MIRTAZAPINE [Suspect]
     Indication: MAJOR DEPRESSION
     Dosage: 45 MG, QD
  2. TRAMADOL HCL [Suspect]
     Indication: BACK PAIN
     Dosage: 150 MG, QD
  3. OLNAZAPINE (OLANZAPINE) [Suspect]
     Indication: PSYCHOTIC DISORDER
     Dosage: 10 MG, QD

REACTIONS (11)
  - AGITATION [None]
  - CONFUSIONAL STATE [None]
  - COORDINATION ABNORMAL [None]
  - DRUG INTERACTION [None]
  - FLUSHING [None]
  - HYPERREFLEXIA [None]
  - MYOCLONUS [None]
  - RESTLESSNESS [None]
  - SEROTONIN SYNDROME [None]
  - TACHYCARDIA [None]
  - TREMOR [None]
